FAERS Safety Report 19482335 (Version 1)
Quarter: 2021Q2

REPORT INFORMATION
  Report Type: Spontaneous
  Country: US (occurrence: US)
  Receive Date: 20210630
  Receipt Date: 20210630
  Transmission Date: 20210717
  Serious: No
  Sender: FDA-Public Use
  Company Number: None

PATIENT
  Age: 28 Year
  Sex: Female
  Weight: 74.84 kg

DRUGS (1)
  1. ETONOGESTERE ETHYNYL EST VAG RING [Suspect]
     Active Substance: ETHINYL ESTRADIOL\ETONOGESTREL
     Indication: CONTRACEPTION
     Dosage: ?          QUANTITY:1 RING;?
     Route: 067

REACTIONS (4)
  - Product substitution issue [None]
  - Menstrual disorder [None]
  - Muscle spasms [None]
  - Heavy menstrual bleeding [None]

NARRATIVE: CASE EVENT DATE: 20200505
